FAERS Safety Report 8295163-4 (Version None)
Quarter: 2012Q2

REPORT INFORMATION
  Report Type: 
  Country: None (occurrence: None)
  Receive Date: 20120418
  Receipt Date: 20120403
  Transmission Date: 20120825
  Serious: Yes (Hospitalization)
  Sender: FDA-Public Use
  Company Number: MX-ROCHE-1057214

PATIENT
  Sex: Female
  Weight: 44 kg

DRUGS (3)
  1. MULTI-VITAMIN [Concomitant]
     Route: 048
     Dates: start: 20120103
  2. METFORMIN HCL [Concomitant]
     Indication: DIABETES MELLITUS
     Route: 048
  3. HERCEPTIN [Suspect]
     Indication: BREAST CANCER
     Route: 042
     Dates: start: 20120103

REACTIONS (9)
  - RHINORRHOEA [None]
  - HEADACHE [None]
  - DYSGEUSIA [None]
  - SENSATION OF HEAVINESS [None]
  - SOMNOLENCE [None]
  - OEDEMA PERIPHERAL [None]
  - DYSPNOEA [None]
  - BRONCHIAL OBSTRUCTION [None]
  - OROPHARYNGEAL PAIN [None]
